FAERS Safety Report 5634027-9 (Version None)
Quarter: 2008Q1

REPORT INFORMATION
  Report Type: 
  Country: None (occurrence: None)
  Receive Date: 20080221
  Receipt Date: 20080221
  Transmission Date: 20080703
  Serious: Yes (Other)
  Sender: FDA-Public Use
  Company Number: None

PATIENT
  Sex: Male

DRUGS (2)
  1. HEPARIN [Suspect]
  2. CEFUROXIME [Suspect]

REACTIONS (2)
  - DRUG ERUPTION [None]
  - HAEMATOCRIT DECREASED [None]
